FAERS Safety Report 24185958 (Version 2)
Quarter: 2024Q3

REPORT INFORMATION
  Report Type: Spontaneous
  Country: US (occurrence: US)
  Receive Date: 20240807
  Receipt Date: 20240908
  Transmission Date: 20241017
  Serious: No
  Sender: BAUSCH AND LOMB
  Company Number: US-BAUSCHBL-2024BNL030856

PATIENT
  Age: 67 Year
  Sex: Female

DRUGS (2)
  1. ALAWAY [Suspect]
     Active Substance: KETOTIFEN FUMARATE
     Indication: Eye pruritus
     Dosage: EVERY MORNING AND SOMETIMES AT NIGHT ON A DOSE OF 1 TO 3 DROPS IN EACH EYE
     Route: 047
     Dates: end: 20240523
  2. ALAWAY [Suspect]
     Active Substance: KETOTIFEN FUMARATE
     Indication: Lacrimation increased

REACTIONS (5)
  - Eye pain [Recovered/Resolved]
  - Injury [Recovered/Resolved]
  - Eye injury [Recovered/Resolved]
  - Product design issue [Unknown]
  - Product delivery mechanism issue [Unknown]

NARRATIVE: CASE EVENT DATE: 20240523
